FAERS Safety Report 11435436 (Version 2)
Quarter: 2016Q1

REPORT INFORMATION
  Report Type: Spontaneous
  Country: US (occurrence: US)
  Receive Date: 20150831
  Receipt Date: 20160208
  Transmission Date: 20160525
  Serious: No
  Sender: FDA-Public Use
  Company Number: US-PFIZER INC-2015284863

PATIENT
  Sex: Female

DRUGS (6)
  1. TETRACYCLINE HCL [Suspect]
     Active Substance: TETRACYCLINE HYDROCHLORIDE
  2. HEPARIN SODIUM. [Suspect]
     Active Substance: HEPARIN SODIUM
  3. TRAMADOL. [Suspect]
     Active Substance: TRAMADOL
  4. ERYTHROMYCIN. [Suspect]
     Active Substance: ERYTHROMYCIN
  5. CODEINE [Suspect]
     Active Substance: CODEINE
  6. DIFLUCAN [Suspect]
     Active Substance: FLUCONAZOLE

REACTIONS (1)
  - Drug hypersensitivity [Unknown]
